FAERS Safety Report 7814369-9 (Version None)
Quarter: 2011Q4

REPORT INFORMATION
  Report Type: 
  Country: None (occurrence: None)
  Receive Date: 20111014
  Receipt Date: 20110930
  Transmission Date: 20120403
  Serious: Yes (Other)
  Sender: FDA-Public Use
  Company Number: PHHY2011BR78771

PATIENT
  Sex: Male

DRUGS (4)
  1. METICORTEN [Concomitant]
     Indication: COLITIS
     Dosage: 40 MG, DAILY
     Dates: start: 20110918
  2. CARBAMAZEPINE [Concomitant]
     Indication: EPILEPSY
     Dosage: 2 DF, A DAY
     Route: 048
  3. DIOVAN HCT [Suspect]
     Indication: HYPERTENSION
     Dosage: 1 DF (160 MG VALS AND 12.5 MG HYDR), DAILY
     Route: 048
  4. SULFASALAZINE [Concomitant]
     Indication: COLITIS
     Dosage: 6 TABLETS (500 MG) PER DAY
     Dates: start: 20110926

REACTIONS (3)
  - COLITIS [None]
  - COELIAC DISEASE [None]
  - DIARRHOEA [None]
